FAERS Safety Report 22235720 (Version 1)
Quarter: 2023Q2

REPORT INFORMATION
  Report Type: Report from Study
  Country: CN (occurrence: CN)
  Receive Date: 20230420
  Receipt Date: 20230420
  Transmission Date: 20230722
  Serious: Yes (Other)
  Sender: FDA-Public Use
  Company Number: CN-SUN PHARMACEUTICAL INDUSTRIES LTD-2023R1-385857

PATIENT
  Age: 36 Year
  Sex: Female

DRUGS (5)
  1. PREDNISONE [Suspect]
     Active Substance: PREDNISONE
     Indication: Sjogren^s syndrome
     Dosage: 20 MILLIGRAM, QD
     Route: 048
  2. TACROLIMUS [Suspect]
     Active Substance: TACROLIMUS
     Indication: Sjogren^s syndrome
     Dosage: 0.5 MILLIGRAM, QD
     Route: 048
  3. HYDROXYCHLOROQUINE [Suspect]
     Active Substance: HYDROXYCHLOROQUINE
     Indication: Sjogren^s syndrome
     Dosage: 200 MILLIGRAM, QD
     Route: 048
  4. ASPIRIN [Suspect]
     Active Substance: ASPIRIN
     Indication: Sjogren^s syndrome
     Dosage: 100 MILLIGRAM
     Route: 048
  5. HEPARIN [Suspect]
     Active Substance: HEPARIN SODIUM
     Indication: Sjogren^s syndrome
     Dosage: 4000 IU, Q12H
     Route: 058

REACTIONS (2)
  - Ascites [Unknown]
  - Exposure during pregnancy [Unknown]
